FAERS Safety Report 8954211 (Version 3)
Quarter: 2013Q1

REPORT INFORMATION
  Report Type: Report from Study
  Country: AU (occurrence: AU)
  Receive Date: 20121207
  Receipt Date: 20130129
  Transmission Date: 20140127
  Serious: Yes (Hospitalization)
  Sender: FDA-Public Use
  Company Number: AU-JNJFOC-20121007852

PATIENT
  Age: 68 Year
  Sex: Male

DRUGS (17)
  1. ABIRATERONE ACETATE [Suspect]
     Route: 048
  2. ABIRATERONE ACETATE [Suspect]
     Indication: PROSTATE CANCER METASTATIC
     Route: 048
     Dates: start: 20120926
  3. PREDNISONE [Suspect]
     Indication: PROSTATE CANCER METASTATIC
     Route: 048
     Dates: start: 20100121, end: 20110316
  4. ROSUVASTATIN [Concomitant]
     Indication: HYPERCHOLESTEROLAEMIA
     Route: 048
     Dates: start: 20080201
  5. ASPIRIN [Concomitant]
     Indication: THROMBOSIS PROPHYLAXIS
     Route: 048
     Dates: start: 20080201, end: 20121011
  6. FAMCICLOVIR [Concomitant]
     Indication: HERPES ZOSTER
     Route: 048
     Dates: start: 20121008, end: 20121018
  7. METFORMIN [Concomitant]
     Indication: DIABETES MELLITUS
     Route: 048
     Dates: start: 20080201
  8. OXYCODONE [Concomitant]
     Indication: HERPES ZOSTER
     Route: 048
     Dates: start: 20121006, end: 20121007
  9. ZOLADEX [Concomitant]
     Indication: PROSTATE CANCER
     Route: 058
     Dates: start: 20071001
  10. ZOLADEX [Concomitant]
     Indication: PROSTATE CANCER
     Route: 058
     Dates: start: 20100121
  11. TARGIN [Concomitant]
     Indication: CANCER PAIN
     Route: 048
     Dates: start: 20120718
  12. PARACETAMOL [Concomitant]
     Indication: HERPES ZOSTER
     Route: 048
     Dates: start: 20121007, end: 20121009
  13. MICARDIS [Concomitant]
     Indication: HYPERTENSION
     Route: 048
     Dates: start: 20080201
  14. ASPIRIN WITH CODEINE [Concomitant]
     Indication: HERPES ZOSTER
     Route: 048
     Dates: start: 20121007, end: 20121009
  15. CALCIUM WITH VITAMIN D [Concomitant]
     Indication: BONE DISORDER
     Route: 048
     Dates: start: 20120403
  16. DENOSUMAB [Concomitant]
     Indication: BONE DISORDER
     Route: 058
     Dates: start: 20120403
  17. IBUPROFEN [Concomitant]
     Indication: PAIN
     Route: 048
     Dates: start: 20121006, end: 20121009

REACTIONS (1)
  - Upper gastrointestinal haemorrhage [Recovered/Resolved]
